FAERS Safety Report 15895090 (Version 2)
Quarter: 2019Q1

REPORT INFORMATION
  Report Type: Spontaneous
  Country: DE (occurrence: DE)
  Receive Date: 20190131
  Receipt Date: 20190207
  Transmission Date: 20190417
  Serious: Yes (Other)
  Sender: FDA-Public Use
  Company Number: DE-ASTELLAS-2019US002659

PATIENT
  Age: 62 Year
  Sex: Female
  Weight: 113 kg

DRUGS (5)
  1. VIGANTOLETTEN [Concomitant]
     Active Substance: CHOLECALCIFEROL
     Indication: PRODUCT USED FOR UNKNOWN INDICATION
     Dosage: UNK UNK, ONCE DAILY
     Route: 065
  2. PACLITAXEL. [Concomitant]
     Active Substance: PACLITAXEL
     Indication: BREAST CANCER
     Dosage: UNK UNK, UNKNOWN FREQ.
     Route: 065
  3. BACLOFEN. [Concomitant]
     Active Substance: BACLOFEN
     Indication: PRODUCT USED FOR UNKNOWN INDICATION
     Dosage: UNK UNK, TWICE DAILY
     Route: 065
  4. NOVAMINSULFON [Concomitant]
     Active Substance: METAMIZOLE
     Indication: PRODUCT USED FOR UNKNOWN INDICATION
     Dosage: UNK UNK, TWICE DAILY
     Route: 065
  5. BETMIGA [Suspect]
     Active Substance: MIRABEGRON
     Indication: URGE INCONTINENCE
     Route: 048
     Dates: start: 201812, end: 20190116

REACTIONS (17)
  - Arthralgia [Unknown]
  - Cardiac hypertrophy [Unknown]
  - Dyspnoea [Not Recovered/Not Resolved]
  - Obesity [Unknown]
  - Arrhythmia [Unknown]
  - Diastolic dysfunction [Unknown]
  - Mitral valve incompetence [Unknown]
  - Tricuspid valve incompetence [Unknown]
  - Tachycardia [Not Recovered/Not Resolved]
  - Nausea [Not Recovered/Not Resolved]
  - Hypertensive heart disease [Unknown]
  - Pulmonary hypertension [Unknown]
  - Dizziness [Not Recovered/Not Resolved]
  - Oedema [Not Recovered/Not Resolved]
  - Vertigo [Not Recovered/Not Resolved]
  - Palpitations [Not Recovered/Not Resolved]
  - Blood pressure increased [Unknown]

NARRATIVE: CASE EVENT DATE: 20181206
